FAERS Safety Report 22006611 (Version 1)
Quarter: 2023Q1

REPORT INFORMATION
  Report Type: Spontaneous
  Country: None (occurrence: US)
  Receive Date: 20230217
  Receipt Date: 20230217
  Transmission Date: 20230418
  Serious: Yes (Hospitalization, Other)
  Sender: FDA-Public Use
  Company Number: US-Hisun Pharmaceuticals-2138060

PATIENT
  Age: 80 Year
  Sex: Male

DRUGS (3)
  1. CLADRIBINE [Suspect]
     Active Substance: CLADRIBINE
     Indication: Hairy cell leukaemia
  2. PENTOSTATIN [Suspect]
     Active Substance: PENTOSTATIN
  3. RITUXIMAB [Suspect]
     Active Substance: RITUXIMAB

REACTIONS (4)
  - Hairy cell leukaemia recurrent [Recovered/Resolved]
  - Haemorrhage intracranial [Recovering/Resolving]
  - Febrile neutropenia [Recovering/Resolving]
  - Therapy partial responder [Unknown]
